FAERS Safety Report 8607145 (Version 2)
Quarter: 2013Q3

REPORT INFORMATION
  Report Type: Spontaneous
  Country: US (occurrence: US)
  Receive Date: 20120611
  Receipt Date: 20130722
  Transmission Date: 20140515
  Serious: Yes (Disabling, Other)
  Sender: FDA-Public Use
  Company Number: US-ASTRAZENECA-2012SE36134

PATIENT
  Age: 540 Month
  Sex: Female
  Weight: 74.8 kg

DRUGS (22)
  1. NEXIUM [Suspect]
     Indication: GASTROOESOPHAGEAL REFLUX DISEASE
     Dosage: ONE PER DAY
     Route: 048
     Dates: start: 20060518
  2. NEXIUM [Suspect]
     Indication: GASTROOESOPHAGEAL REFLUX DISEASE
     Dosage: ONE PER DAY
     Route: 048
     Dates: start: 20070314
  3. NEXIUM [Suspect]
     Indication: GASTROOESOPHAGEAL REFLUX DISEASE
     Dosage: ONE PER DAY
     Route: 048
     Dates: start: 20110118
  4. NEXIUM [Suspect]
     Indication: GASTROOESOPHAGEAL REFLUX DISEASE
     Route: 048
     Dates: start: 20101020
  5. PRILOSEC OTC [Suspect]
     Route: 048
     Dates: start: 20040517
  6. PRILOSEC OTC [Suspect]
     Route: 048
     Dates: start: 20100519
  7. PRILOSEC OTC [Suspect]
     Route: 048
     Dates: start: 20100306
  8. PROTONIX [Concomitant]
     Dates: start: 20011207
  9. PREVACID [Concomitant]
     Dates: start: 20021203
  10. PREVACID [Concomitant]
     Dates: start: 20120410
  11. ZANTAC [Concomitant]
     Dates: start: 20020612
  12. PEPCID [Concomitant]
     Dates: start: 20100519
  13. PEPCID [Concomitant]
     Dates: start: 20110214
  14. TUMS [Concomitant]
  15. MILK OF MAGNESIA [Concomitant]
     Dosage: AS NEEDED
  16. MYLANTA [Concomitant]
     Dosage: AS NEEDED
  17. SIMVASTATIN [Concomitant]
     Dates: start: 20101001
  18. CLONAZEPAM [Concomitant]
     Dates: start: 20101001
  19. FUROSEMIDE [Concomitant]
     Dates: start: 20101001
  20. SINGULAIR [Concomitant]
     Dates: start: 20101001
  21. PREDNISONE [Concomitant]
     Dates: start: 20090219
  22. SEROQUEL [Concomitant]
     Dates: start: 20021203

REACTIONS (18)
  - Pain [Unknown]
  - Throat cancer [Unknown]
  - Cardiac failure congestive [Unknown]
  - Osteoporosis [Unknown]
  - Multiple fractures [Unknown]
  - Angina pectoris [Unknown]
  - Cataract [Unknown]
  - Arthritis [Unknown]
  - Chronic obstructive pulmonary disease [Unknown]
  - Calcium deficiency [Unknown]
  - Aphagia [Unknown]
  - Intervertebral disc degeneration [Unknown]
  - Osteoarthritis [Unknown]
  - Upper limb fracture [Unknown]
  - Lower limb fracture [Unknown]
  - Abdominal pain [Unknown]
  - Depression [Unknown]
  - Insomnia [Unknown]
